FAERS Safety Report 8588130-4 (Version None)
Quarter: 2012Q3

REPORT INFORMATION
  Report Type: 
  Country: None (occurrence: None)
  Receive Date: 20120813
  Receipt Date: 20120807
  Transmission Date: 20120928
  Serious: No
  Sender: FDA-Public Use
  Company Number: US-PFIZER INC-2012138197

PATIENT
  Age: 58 Year
  Sex: Female

DRUGS (2)
  1. SUTENT [Suspect]
     Indication: RENAL CELL CARCINOMA
     Dosage: 25 MG, 2X/DAY, 1 IN MORNING AND 1 AT NIGHT FOR A WEEK
     Route: 048
     Dates: start: 20120523
  2. SUTENT [Suspect]
     Dosage: 25 MG, 1X/DAY

REACTIONS (4)
  - PALMAR-PLANTAR ERYTHRODYSAESTHESIA SYNDROME [None]
  - PLATELET COUNT DECREASED [None]
  - INFLUENZA [None]
  - THROMBOCYTOPENIA [None]
